FAERS Safety Report 25304615 (Version 11)
Quarter: 2025Q4

REPORT INFORMATION
  Report Type: Spontaneous
  Country: US (occurrence: US)
  Receive Date: 20250513
  Receipt Date: 20251226
  Transmission Date: 20260118
  Serious: Yes (Other)
  Sender: BAYER HEALTHCARE PHARMACEUTICALS INC.
  Company Number: US-BAYER-2025A063050

PATIENT
  Age: 37 Year
  Sex: Male
  Weight: 79.365 kg

DRUGS (16)
  1. KOVALTRY [Suspect]
     Active Substance: ANTIHEMOPHILIC FACTOR, HUMAN RECOMBINANT
     Indication: Factor VIII deficiency
     Dosage: 3000 UNITS  EVERY 24 HOURS AS NEEDED
     Route: 042
  2. KOVALTRY [Suspect]
     Active Substance: ANTIHEMOPHILIC FACTOR, HUMAN RECOMBINANT
     Indication: Factor VIII deficiency
     Dosage: 2 IN 36 HOURS
     Route: 042
  3. KOVALTRY [Suspect]
     Active Substance: ANTIHEMOPHILIC FACTOR, HUMAN RECOMBINANT
     Indication: Factor VIII deficiency
     Dosage: 3 DF TO TREAT
  4. KOVALTRY [Suspect]
     Active Substance: ANTIHEMOPHILIC FACTOR, HUMAN RECOMBINANT
     Indication: Factor VIII deficiency
     Dosage: 1 DF ON HAND
  5. KOVALTRY [Suspect]
     Active Substance: ANTIHEMOPHILIC FACTOR, HUMAN RECOMBINANT
     Indication: Factor VIII deficiency
     Dosage: KOVALTRY 3000 UNITS ~ INFUSED 3000 IU (+/-10%) INTRAVENOUSLY EVERY 24 HOURS AS NEEDED FOR BLEEDS
     Route: 042
  6. KOVALTRY [Suspect]
     Active Substance: ANTIHEMOPHILIC FACTOR, HUMAN RECOMBINANT
     Indication: Factor VIII deficiency
     Dosage: INFUSE 3000 IU EVERY 24 HOURS AS NEEDED/INFUSE ~ 3000 UNITS (+/-10%) INTRAVENOUS
     Route: 042
  7. KOVALTRY [Suspect]
     Active Substance: ANTIHEMOPHILIC FACTOR, HUMAN RECOMBINANT
     Indication: Factor VIII deficiency
     Dosage: 2 IN 36 HOURS
     Route: 042
  8. KOVALTRY [Suspect]
     Active Substance: ANTIHEMOPHILIC FACTOR, HUMAN RECOMBINANT
     Indication: Factor VIII deficiency
     Dosage: KOVALTRY 3000 UNITS ~ INFUSED 3000 IU (+/-10%) INTRAVENOUSLY EVERY 24 HOURS AS NEEDED FOR BLEEDS
     Route: 042
  9. KOVALTRY [Suspect]
     Active Substance: ANTIHEMOPHILIC FACTOR, HUMAN RECOMBINANT
     Indication: Factor VIII deficiency
     Dosage: 2 DF
     Route: 042
  10. KOVALTRY [Suspect]
     Active Substance: ANTIHEMOPHILIC FACTOR, HUMAN RECOMBINANT
     Indication: Factor VIII deficiency
     Dosage: STRENGTH 3000 UNITS ~ INFUSED 3000 IU (+/-10%) INTRAVENOUSLY
     Route: 042
  11. KOVALTRY [Suspect]
     Active Substance: ANTIHEMOPHILIC FACTOR, HUMAN RECOMBINANT
     Indication: Factor VIII deficiency
     Dosage: 5 DF
     Route: 042
  12. KOVALTRY [Suspect]
     Active Substance: ANTIHEMOPHILIC FACTOR, HUMAN RECOMBINANT
     Indication: Factor VIII deficiency
     Dosage: USLY EVERY 24 HOURS AS NEEDED FOR BLEEDING
     Route: 042
  13. HEMLIBRA [Concomitant]
     Active Substance: EMICIZUMAB-KXWH
     Dosage: 120 MG SQ EVERY WEEK
     Route: 058
  14. GABAPENTIN [Concomitant]
     Active Substance: GABAPENTIN
     Dosage: UNK
  15. MELOXICAM [Concomitant]
     Active Substance: MELOXICAM
     Dosage: UNK
  16. CELEBREX [Concomitant]
     Active Substance: CELECOXIB

REACTIONS (9)
  - Haemarthrosis [Unknown]
  - Haemarthrosis [Recovering/Resolving]
  - Haemarthrosis [Recovering/Resolving]
  - Haemarthrosis [Unknown]
  - Haemarthrosis [None]
  - Haemarthrosis [None]
  - Haemarthrosis [Not Recovered/Not Resolved]
  - Meniscus injury [Recovering/Resolving]
  - Haemarthrosis [None]

NARRATIVE: CASE EVENT DATE: 20250527
